FAERS Safety Report 4862847-7 (Version None)
Quarter: 2005Q4

REPORT INFORMATION
  Report Type: 
  Country: None (occurrence: None)
  Receive Date: 20051221
  Receipt Date: 20051216
  Transmission Date: 20060501
  Serious: Yes (Life-Threatening)
  Sender: FDA-Public Use
  Company Number: US-BRACCO-BDI-007801

PATIENT
  Age: 34 Year
  Sex: Female

DRUGS (3)
  1. ISOVUE-128 [Suspect]
     Indication: TROPONIN INCREASED
     Route: 042
     Dates: start: 20051212, end: 20051212
  2. ISOVUE-128 [Suspect]
     Indication: CHEST PAIN
     Route: 042
     Dates: start: 20051212, end: 20051212
  3. ISOVUE-128 [Suspect]
     Route: 042
     Dates: start: 20051212, end: 20051212

REACTIONS (3)
  - CONTRAST MEDIA REACTION [None]
  - SINUS TACHYCARDIA [None]
  - TORSADE DE POINTES [None]
